FAERS Safety Report 7208748-0 (Version None)
Quarter: 2011Q1

REPORT INFORMATION
  Report Type: 
  Country: None (occurrence: None)
  Receive Date: 20110104
  Receipt Date: 20101229
  Transmission Date: 20110831
  Serious: Yes (Other)
  Sender: FDA-Public Use
  Company Number: US-PFIZER INC-2010181597

PATIENT
  Sex: Female
  Weight: 57 kg

DRUGS (3)
  1. ZYVOX [Suspect]
     Indication: BACTERIAL INFECTION
     Dosage: UNK
     Dates: start: 20070101, end: 20070101
  2. ZYVOX [Suspect]
     Dosage: UNK
     Route: 042
     Dates: start: 20101001
  3. SYNTHROID [Concomitant]
     Indication: THYROIDECTOMY
     Dosage: UNK

REACTIONS (5)
  - HYPERSENSITIVITY [None]
  - BACTERIAL INFECTION [None]
  - NEPHROLITHIASIS [None]
  - RASH [None]
  - STENT PLACEMENT [None]
